FAERS Safety Report 8499048-X (Version None)
Quarter: 2012Q3

REPORT INFORMATION
  Report Type: 
  Country: None (occurrence: None)
  Receive Date: 20120710
  Receipt Date: 20120629
  Transmission Date: 20120928
  Serious: No
  Sender: FDA-Public Use
  Company Number: US-009507513-1207USA00071

PATIENT

DRUGS (4)
  1. GLYBURIDE [Concomitant]
  2. JANUVIA [Suspect]
     Indication: DIABETES MELLITUS
     Dosage: 100 MG, QD
     Route: 048
     Dates: start: 20100601
  3. VICTOZA [Concomitant]
  4. MK-9378 [Concomitant]

REACTIONS (4)
  - DYSPEPSIA [None]
  - HEADACHE [None]
  - DRUG INEFFECTIVE [None]
  - DYSPHONIA [None]
